FAERS Safety Report 16051280 (Version 1)
Quarter: 2019Q1

REPORT INFORMATION
  Report Type: Spontaneous
  Country: US (occurrence: US)
  Receive Date: 20190308
  Receipt Date: 20190308
  Transmission Date: 20190418
  Serious: Yes (Hospitalization, Disabling, Other)
  Sender: FDA-Public Use
  Company Number: US-ASTRAZENECA-2019SE33504

PATIENT
  Age: 55 Year
  Sex: Female

DRUGS (8)
  1. CARBAMAZEPINE. [Concomitant]
     Active Substance: CARBAMAZEPINE
  2. DULOXETINE. [Concomitant]
     Active Substance: DULOXETINE
  3. VALPROATE SODIUM. [Concomitant]
     Active Substance: VALPROATE SODIUM
  4. BENZTROPINE. [Concomitant]
     Active Substance: BENZTROPINE
     Indication: PARKINSONISM
  5. QUETIAPINE. [Suspect]
     Active Substance: QUETIAPINE
     Route: 048
  6. PALIPERIDONE. [Suspect]
     Active Substance: PALIPERIDONE
     Dosage: 1 WEEK
     Route: 065
  7. TRAZODONE [Concomitant]
     Active Substance: TRAZODONE HYDROCHLORIDE
  8. LORAZEPAM. [Concomitant]
     Active Substance: LORAZEPAM
     Dosage: 2 MG EVERY 6 HOURS FOR 72 HOURS WITHOUT IMPROVEMENT OF HER SYMPTOMS

REACTIONS (1)
  - Catatonia [Recovered/Resolved]
